FAERS Safety Report 19957145 (Version 2)
Quarter: 2021Q4

REPORT INFORMATION
  Report Type: Spontaneous
  Country: ES (occurrence: ES)
  Receive Date: 20211014
  Receipt Date: 20211121
  Transmission Date: 20220303
  Serious: Yes (Hospitalization)
  Sender: FDA-Public Use
  Company Number: ES-ACCORD-239996

PATIENT
  Age: 63 Year
  Sex: Male
  Weight: 70 kg

DRUGS (6)
  1. TEMOZOLOMIDE [Suspect]
     Active Substance: TEMOZOLOMIDE
     Dosage: STRENGTH: 175MG, DAILY
     Route: 048
     Dates: start: 20210818
  2. TEMOZOLOMIDE [Suspect]
     Active Substance: TEMOZOLOMIDE
     Dosage: STRENGTH: 150MG, DAILY
     Route: 048
     Dates: start: 20210601, end: 20210713
  3. GLASDEGIB [Suspect]
     Active Substance: GLASDEGIB
     Dosage: STRENGTH:75MG, DAILY
     Route: 048
     Dates: start: 20210601
  4. OMEPRAZOLE [Concomitant]
     Active Substance: OMEPRAZOLE
     Dosage: UNK
  5. ENALAPRIL [Concomitant]
     Active Substance: ENALAPRIL
     Dosage: UNK
  6. DEXAMETHASONE [Concomitant]
     Active Substance: DEXAMETHASONE

REACTIONS (1)
  - Depressed level of consciousness [Recovering/Resolving]

NARRATIVE: CASE EVENT DATE: 20210904
